FAERS Safety Report 10051284 (Version 2)
Quarter: 2014Q2

REPORT INFORMATION
  Report Type: Spontaneous
  Country: US (occurrence: US)
  Receive Date: 20140401
  Receipt Date: 20140501
  Transmission Date: 20141212
  Serious: No
  Sender: FDA-Public Use
  Company Number: US-PFIZER INC-2014089788

PATIENT
  Age: 67 Year
  Sex: Female
  Weight: 57.6 kg

DRUGS (3)
  1. GABAPENTIN [Suspect]
     Indication: FIBROMYALGIA
     Dosage: 300 MG, DAILY
  2. LOTENSIN [Concomitant]
     Indication: HYPERTENSION
     Dosage: 20 MG, DAILY
  3. BENAZEPRIL [Concomitant]
     Indication: HYPERTENSION
     Dosage: 25 MG, DAILY

REACTIONS (3)
  - Drug ineffective [Unknown]
  - Tremor [Not Recovered/Not Resolved]
  - Dyskinesia [Not Recovered/Not Resolved]
